FAERS Safety Report 23902478 (Version 2)
Quarter: 2024Q2

REPORT INFORMATION
  Report Type: Spontaneous
  Country: US (occurrence: US)
  Receive Date: 20240527
  Receipt Date: 20240606
  Transmission Date: 20240716
  Serious: No
  Sender: FDA-Public Use
  Company Number: US-AMGEN-USASP2024101903

PATIENT
  Age: 72 Year
  Sex: Male

DRUGS (1)
  1. REPATHA [Suspect]
     Active Substance: EVOLOCUMAB
     Indication: Blood cholesterol increased
     Dosage: 420 MILLIGRAM, QMO
     Route: 065
     Dates: start: 20240401

REACTIONS (4)
  - Rash [Not Recovered/Not Resolved]
  - Arthropod bite [Unknown]
  - Pruritus [Unknown]
  - Pityriasis rosea [Unknown]

NARRATIVE: CASE EVENT DATE: 20240401
